FAERS Safety Report 7001164-6 (Version None)
Quarter: 2010Q3

REPORT INFORMATION
  Report Type: 
  Country: None (occurrence: None)
  Receive Date: 20100920
  Receipt Date: 20090721
  Transmission Date: 20110219
  Serious: Yes (Hospitalization)
  Sender: FDA-Public Use
  Company Number: US-ASTRAZENECA-2007UW25662

PATIENT
  Age: 12374 Day
  Sex: Male

DRUGS (19)
  1. SEROQUEL [Suspect]
     Dosage: 200 MG DAILY , 100 MG ONE TABLET TWICE DAILY
     Route: 048
     Dates: start: 20030304
  2. NEURONTIN [Concomitant]
     Dosage: 2400 - 3200 MG
     Dates: start: 20030304
  3. TEMAZEPAM [Concomitant]
     Dates: start: 20040719
  4. TRILAFON [Concomitant]
     Dates: start: 20040719
  5. CARBAMAZEPINE [Concomitant]
     Dosage: 200 MG TWO TABLETS TWICE A DAY
     Dates: start: 20040719
  6. PLAVIX [Concomitant]
     Dates: start: 20040719
  7. ASPIRIN [Concomitant]
     Dates: start: 20040719
  8. METOPROLOL [Concomitant]
     Dates: start: 20040719
  9. ENALAPRIL [Concomitant]
     Dates: start: 20040719
  10. ZYBAN [Concomitant]
     Dates: start: 20040719
  11. NEXIUM [Concomitant]
     Dates: start: 20040719
  12. FUROSEMIDE [Concomitant]
     Dates: start: 20040719
  13. KLOR-CON [Concomitant]
     Dates: start: 20040719
  14. GEMFIBROZIL [Concomitant]
     Dates: start: 20040719
  15. CLONAZEPAM [Concomitant]
     Dates: start: 20040719
  16. BENZTROPINE MESYLATE [Concomitant]
     Dosage: 2 MG DAILY, 1 MG 1 TABLET TWICE DAILY
     Dates: start: 20030304
  17. DIPHENHYDRAMINE HCL [Concomitant]
     Dosage: 50 MG 2 CAPSULES EVERY NIGHT
     Dates: start: 20030304
  18. TRAZODONE HCL [Concomitant]
     Dosage: 150 MG TWO TABLETS AT NIGHT
     Dates: start: 20030304
  19. RISPERDAL [Concomitant]
     Dosage: 2 MG HALF TABLET EVERYDAY
     Dates: start: 20030224

REACTIONS (2)
  - DIABETES MELLITUS INADEQUATE CONTROL [None]
  - TYPE 2 DIABETES MELLITUS [None]
